FAERS Safety Report 10444748 (Version 2)
Quarter: 2014Q3

REPORT INFORMATION
  Report Type: Report from Study
  Country: CA (occurrence: CA)
  Receive Date: 20140910
  Receipt Date: 20140910
  Transmission Date: 20150326
  Serious: Yes (Hospitalization, Other)
  Sender: FDA-Public Use
  Company Number: CA-ABBVIE-11P-028-0834478-00

PATIENT
  Age: 67 Year
  Sex: Female
  Weight: 68.1 kg

DRUGS (10)
  1. HUMIRA [Suspect]
     Active Substance: ADALIMUMAB
     Dates: end: 201104
  2. ATACAND [Concomitant]
     Active Substance: CANDESARTAN CILEXETIL
     Indication: HYPERTENSION
     Route: 048
  3. HUMIRA [Suspect]
     Active Substance: ADALIMUMAB
     Dates: end: 20110609
  4. APO METOPROLOL [Concomitant]
     Indication: HYPERTENSION
     Route: 048
  5. RIVA-D [Concomitant]
     Indication: VITAMIN SUPPLEMENTATION
     Route: 048
  6. FOSAMAX [Concomitant]
     Active Substance: ALENDRONATE SODIUM
     Indication: MINERAL SUPPLEMENTATION
     Route: 048
  7. HYDROCYCLINE [Concomitant]
     Indication: ARTHRITIS
     Route: 048
  8. HUMIRA [Suspect]
     Active Substance: ADALIMUMAB
     Indication: RHEUMATOID ARTHRITIS
     Route: 058
     Dates: start: 20090330, end: 201103
  9. METFORMIN [Concomitant]
     Active Substance: METFORMIN HYDROCHLORIDE
     Indication: DIABETES MELLITUS
     Route: 048
  10. INDAPAMIDE. [Concomitant]
     Active Substance: INDAPAMIDE
     Indication: HYPERTENSION
     Route: 048

REACTIONS (2)
  - Breast cancer [Not Recovered/Not Resolved]
  - Ovarian mass [Recovered/Resolved]

NARRATIVE: CASE EVENT DATE: 20101217
